FAERS Safety Report 13499563 (Version 1)
Quarter: 2017Q2

REPORT INFORMATION
  Report Type: Report from Study
  Country: RO (occurrence: RO)
  Receive Date: 20170501
  Receipt Date: 20170501
  Transmission Date: 20170830
  Serious: Yes (Hospitalization)
  Sender: FDA-Public Use
  Company Number: RO-EMD SERONO-8155098

PATIENT
  Age: 56 Year
  Sex: Female

DRUGS (1)
  1. REBIF [Suspect]
     Active Substance: INTERFERON BETA-1A
     Indication: MULTIPLE SCLEROSIS
     Dosage: UNIT DOSE: ONE VIAL
     Route: 058
     Dates: start: 2017, end: 20170309

REACTIONS (6)
  - Headache [Recovered/Resolved]
  - Multiple sclerosis relapse [Recovered/Resolved]
  - Dizziness [Recovered/Resolved]
  - Vertigo [Recovered/Resolved]
  - Vomiting [Recovered/Resolved]
  - Inappropriate schedule of drug administration [Unknown]

NARRATIVE: CASE EVENT DATE: 20170309
